FAERS Safety Report 14554090 (Version 4)
Quarter: 2018Q2

REPORT INFORMATION
  Report Type: Report from Study
  Country: CO (occurrence: CO)
  Receive Date: 20180220
  Receipt Date: 20180401
  Transmission Date: 20180711
  Serious: Yes (Hospitalization)
  Sender: FDA-Public Use
  Company Number: PHHY2018CO026036

PATIENT
  Age: 20 Year
  Sex: Male
  Weight: 79 kg

DRUGS (4)
  1. TASIGNA [Suspect]
     Active Substance: NILOTINIB
     Dosage: 600 MG, QD
     Route: 048
     Dates: start: 20180214, end: 20180219
  2. TRAMADOL. [Concomitant]
     Active Substance: TRAMADOL
     Indication: PRODUCT USED FOR UNKNOWN INDICATION
     Dosage: UNK
     Route: 065
  3. TASIGNA [Suspect]
     Active Substance: NILOTINIB
     Indication: CHRONIC MYELOID LEUKAEMIA
     Dosage: 600 MG, QD
     Route: 048
     Dates: start: 20180127
  4. VALCOTE [Concomitant]
     Active Substance: VALPROATE SODIUM
     Indication: SEIZURE
     Dosage: 500 MG, QD
     Route: 048

REACTIONS (41)
  - Facial pain [Recovered/Resolved]
  - Feeling hot [Recovered/Resolved]
  - Gastritis [Unknown]
  - Vomiting [Recovered/Resolved]
  - Swelling face [Recovered/Resolved]
  - Epistaxis [Unknown]
  - Feeling of body temperature change [Unknown]
  - Inflammation [Recovered/Resolved]
  - Headache [Recovered/Resolved]
  - Mass [Unknown]
  - Decreased appetite [Unknown]
  - Ear pain [Unknown]
  - Cellulitis [Recovering/Resolving]
  - Arthropod sting [Unknown]
  - Dysstasia [Recovered/Resolved]
  - Oropharyngeal pain [Recovering/Resolving]
  - Pain in extremity [Recovering/Resolving]
  - Inappropriate schedule of drug administration [Unknown]
  - Infection [Unknown]
  - Malaise [Unknown]
  - Eye allergy [Unknown]
  - Depressed mood [Recovering/Resolving]
  - Influenza like illness [Unknown]
  - Myalgia [Recovered/Resolved]
  - Haemorrhage [Unknown]
  - White blood cell count increased [Recovering/Resolving]
  - Pyrexia [Unknown]
  - Eye pruritus [Recovered/Resolved]
  - Cough [Recovered/Resolved]
  - Pain [Unknown]
  - Skin discolouration [Unknown]
  - Nausea [Recovering/Resolving]
  - Dizziness [Recovered/Resolved]
  - Fatigue [Unknown]
  - Movement disorder [Unknown]
  - Nasal septum deviation [Unknown]
  - Acne [Recovered/Resolved]
  - Diarrhoea [Recovered/Resolved]
  - Peripheral coldness [Unknown]
  - Hypoaesthesia [Unknown]
  - C-reactive protein increased [Unknown]

NARRATIVE: CASE EVENT DATE: 20180128
